FAERS Safety Report 15067770 (Version 3)
Quarter: 2018Q3

REPORT INFORMATION
  Report Type: Spontaneous
  Country: US (occurrence: US)
  Receive Date: 20180626
  Receipt Date: 20180717
  Transmission Date: 20181010
  Serious: Yes (Hospitalization)
  Sender: FDA-Public Use
  Company Number: US-VIFOR (INTERNATIONAL) INC.-VIT-2018-06201

PATIENT
  Sex: Male

DRUGS (8)
  1. VELTASSA [Suspect]
     Active Substance: PATIROMER
     Indication: HYPERKALAEMIA
     Route: 048
     Dates: start: 20170601
  2. ROSUVASTATIN CALCIUM. [Concomitant]
     Active Substance: ROSUVASTATIN CALCIUM
  3. EPLERENONE. [Concomitant]
     Active Substance: EPLERENONE
  4. VALSARTAN. [Concomitant]
     Active Substance: VALSARTAN
  5. VELTASSA [Suspect]
     Active Substance: PATIROMER
     Route: 048
     Dates: start: 20180601
  6. ACETYLSALICYLIC ACID [Concomitant]
     Active Substance: ASPIRIN
  7. TRESIBA [Concomitant]
     Active Substance: INSULIN DEGLUDEC
  8. VELTASSA [Suspect]
     Active Substance: PATIROMER
     Route: 048
     Dates: start: 20180525

REACTIONS (4)
  - Drug dose omission [Unknown]
  - Blood potassium increased [Unknown]
  - Adverse drug reaction [Unknown]
  - Constipation [Unknown]

NARRATIVE: CASE EVENT DATE: 2018
